FAERS Safety Report 5168378-1 (Version None)
Quarter: 2006Q4

REPORT INFORMATION
  Report Type: 
  Country: None (occurrence: None)
  Receive Date: 20061129
  Receipt Date: 20061116
  Transmission Date: 20070319
  Serious: Yes (Hospitalization)
  Sender: FDA-Public Use
  Company Number: 2006-150871-NL

PATIENT
  Age: 80 Year
  Sex: Female

DRUGS (10)
  1. MIRTAZAPINE [Suspect]
     Dosage: SEE IMAGE
     Dates: end: 20060727
  2. MIRTAZAPINE [Suspect]
     Dosage: SEE IMAGE
     Dates: start: 20060728, end: 20060808
  3. MIRTAZAPINE [Suspect]
     Dosage: SEE IMAGE
     Dates: start: 20060809, end: 20060817
  4. CITALOPRAM HYDROBROMIDE [Suspect]
     Dosage: 20 MG
     Dates: start: 20060803, end: 20060805
  5. HYDROCHLOROTHIAZIDE [Suspect]
     Indication: OEDEMA DUE TO CARDIAC DISEASE
     Dosage: 25 MG
     Dates: end: 20060815
  6. AMLODIPINE BESYLATE [Suspect]
     Indication: BLOOD PRESSURE INCREASED
     Dosage: 10 MG
     Dates: start: 20060802, end: 20060815
  7. TORSEMIDE [Suspect]
  8. METOPROLOL SUCCINATE [Concomitant]
  9. INSULIN [Concomitant]
  10. RAMIPRIL [Concomitant]

REACTIONS (4)
  - ALOPECIA [None]
  - HYPONATRAEMIA [None]
  - LISTLESS [None]
  - OEDEMA DUE TO CARDIAC DISEASE [None]
